FAERS Safety Report 4735588-4 (Version None)
Quarter: 2005Q3

REPORT INFORMATION
  Report Type: 
  Country: None (occurrence: None)
  Receive Date: 20050805
  Receipt Date: 20050713
  Transmission Date: 20060218
  Serious: Yes (Hospitalization)
  Sender: FDA-Public Use
  Company Number: US-MERCK-0507USA01799M

PATIENT
  Age: 34 Year
  Sex: Female

DRUGS (1)
  1. VIOXX [Suspect]
     Indication: PARTNER STRESS
     Route: 048
     Dates: start: 20030101, end: 20030301

REACTIONS (4)
  - DRUG EXPOSURE DURING PREGNANCY [None]
  - HEART RATE INCREASED [None]
  - HYPERHIDROSIS [None]
  - PLACENTA PRAEVIA [None]
